FAERS Safety Report 6032614-X (Version None)
Quarter: 2009Q1

REPORT INFORMATION
  Report Type: 
  Country: None (occurrence: None)
  Receive Date: 20090109
  Receipt Date: 20090105
  Transmission Date: 20090719
  Serious: Yes (Other)
  Sender: FDA-Public Use
  Company Number: PHEH2006US11384

PATIENT
  Sex: Male

DRUGS (7)
  1. AREDIA [Suspect]
     Indication: LUNG NEOPLASM MALIGNANT
  2. ZOMETA [Suspect]
  3. GLUCOPHAGE [Concomitant]
  4. GLUCOTROL [Concomitant]
  5. LIPITOR [Concomitant]
  6. ANTINEOPLASTIC AGENTS [Concomitant]
     Dosage: UNK
     Dates: start: 20040101
  7. RADIATION THERAPY [Concomitant]
     Dosage: UNK
     Dates: start: 20040101

REACTIONS (18)
  - ANXIETY [None]
  - BONE NEOPLASM MALIGNANT [None]
  - DECREASED INTEREST [None]
  - DEFORMITY [None]
  - DIABETES MELLITUS [None]
  - DYSPEPSIA [None]
  - EMOTIONAL DISTRESS [None]
  - GENERAL PHYSICAL HEALTH DETERIORATION [None]
  - INJURY [None]
  - JAW OPERATION [None]
  - LIFE EXPECTANCY SHORTENED [None]
  - NEOPLASM [None]
  - OSTEONECROSIS [None]
  - PAIN [None]
  - RASH PAPULAR [None]
  - SKIN DISCOLOURATION [None]
  - SKIN DISORDER [None]
  - TOOTH LOSS [None]
